FAERS Safety Report 5742360-5 (Version None)
Quarter: 2008Q2

REPORT INFORMATION
  Report Type: 
  Country: None (occurrence: None)
  Receive Date: 20080515
  Receipt Date: 20080502
  Transmission Date: 20081010
  Serious: Yes (Hospitalization)
  Sender: FDA-Public Use
  Company Number: US023431

PATIENT
  Age: 31 Year
  Sex: Male
  Weight: 70 kg

DRUGS (5)
  1. MODAFINIL [Suspect]
     Indication: CATAPLEXY
     Dosage: ONCE ORAL
     Route: 048
     Dates: start: 20070315, end: 20070315
  2. MODAFINIL [Suspect]
     Indication: NARCOLEPSY
     Dosage: ONCE ORAL
     Route: 048
     Dates: start: 20070315, end: 20070315
  3. NO-DOZ [Suspect]
     Dosage: 300 MG QD ORAL
     Route: 048
     Dates: end: 20070315
  4. IBUROFEN [Concomitant]
  5. ACETAMINOPHEN [Concomitant]

REACTIONS (8)
  - ABNORMAL BEHAVIOUR [None]
  - AGITATION [None]
  - DELUSION [None]
  - DYSTONIA [None]
  - HYPERTENSION [None]
  - OVERDOSE [None]
  - PSYCHOTIC DISORDER [None]
  - TACHYCARDIA [None]
